FAERS Safety Report 9815619 (Version 4)
Quarter: 2014Q1

REPORT INFORMATION
  Report Type: Spontaneous
  Country: JP (occurrence: JP)
  Receive Date: 20140114
  Receipt Date: 20140210
  Transmission Date: 20141002
  Serious: Yes (Life-Threatening)
  Sender: FDA-Public Use
  Company Number: JP-ELI_LILLY_AND_COMPANY-JP201312003414

PATIENT
  Age: 73 Year
  Sex: Male

DRUGS (7)
  1. CYMBALTA [Suspect]
     Indication: DEPRESSION
     Dosage: 20 MG, QD
     Route: 048
     Dates: start: 20131122, end: 20131202
  2. LYRICA [Interacting]
     Indication: NEURALGIA
     Dosage: 150 MG, BID
     Route: 048
     Dates: start: 201310
  3. EURODIN /00425901/ [Interacting]
     Indication: INSOMNIA
     Dosage: 2 MG, QD
     Route: 048
     Dates: start: 20090514
  4. SOLANAX [Concomitant]
     Indication: DEPRESSION
     Dosage: 0.4 MG, TID
     Route: 048
     Dates: start: 20130918
  5. NU-LOTAN [Concomitant]
     Indication: HYPERTENSION
     Dosage: 25 MG, BID
     Route: 048
     Dates: start: 20090514
  6. NIVADIL [Concomitant]
     Indication: HYPERTENSION
     Dosage: 4 MG, BID
     Route: 048
     Dates: start: 20090514
  7. THEODUR [Concomitant]
     Indication: ASTHMA
     Dosage: 100 MG, BID
     Route: 048
     Dates: start: 20090514

REACTIONS (4)
  - Road traffic accident [Recovered/Resolved]
  - Disturbance in attention [Recovered/Resolved]
  - Feeling abnormal [Recovered/Resolved]
  - Drug interaction [Unknown]
